FAERS Safety Report 15213803 (Version 1)
Quarter: 2018Q3

REPORT INFORMATION
  Report Type: Spontaneous
  Country: US (occurrence: US)
  Receive Date: 20180730
  Receipt Date: 20180730
  Transmission Date: 20181010
  Serious: Yes (Other)
  Sender: FDA-Public Use
  Company Number: US-SA-2018SA173568

PATIENT
  Age: 49 Year
  Sex: Female
  Weight: 83.91 kg

DRUGS (7)
  1. TAXOTERE [Suspect]
     Active Substance: DOCETAXEL
     Indication: BREAST CANCER FEMALE
     Dosage: 180 MG
     Route: 042
     Dates: start: 20030829, end: 20030829
  2. TAXOTERE [Suspect]
     Active Substance: DOCETAXEL
     Dosage: 180 UNK
     Route: 042
     Dates: start: 20031107, end: 20031107
  3. RETALIN [Concomitant]
     Active Substance: SERTRALINE HYDROCHLORIDE
     Dosage: UNK UNK, UNK
     Dates: start: 1990, end: 2004
  4. CYTOXAN [Concomitant]
     Active Substance: CYCLOPHOSPHAMIDE
  5. ADRIAMYCIN [Concomitant]
     Active Substance: DOXORUBICIN HYDROCHLORIDE
  6. NEOSAR [Concomitant]
     Active Substance: CYCLOPHOSPHAMIDE
  7. DESIPRAMINE [Concomitant]
     Active Substance: DESIPRAMINE
     Dosage: UNK UNK, UNK
     Route: 042
     Dates: start: 1990, end: 2005

REACTIONS (2)
  - Psychological trauma [Unknown]
  - Alopecia [Not Recovered/Not Resolved]

NARRATIVE: CASE EVENT DATE: 200308
